FAERS Safety Report 7877878-2 (Version None)
Quarter: 2011Q4

REPORT INFORMATION
  Report Type: 
  Country: None (occurrence: None)
  Receive Date: 20111031
  Receipt Date: 20111031
  Transmission Date: 20120403
  Serious: Yes (Other)
  Sender: FDA-Public Use
  Company Number: None

PATIENT
  Age: 17 Year
  Sex: Female
  Weight: 49.441 kg

DRUGS (1)
  1. LOESTRIN 1.5/30 [Suspect]
     Indication: MENSTRUAL DISORDER
     Dosage: 1
     Route: 048
     Dates: start: 20111001, end: 20111028

REACTIONS (1)
  - DRUG DISPENSING ERROR [None]
